FAERS Safety Report 9011533 (Version 1)
Quarter: 2013Q1

REPORT INFORMATION
  Report Type: Spontaneous
  Country: US (occurrence: US)
  Receive Date: 20130108
  Receipt Date: 20130108
  Transmission Date: 20140127
  Serious: Yes (Other)
  Sender: FDA-Public Use
  Company Number: US-JNJFOC-20121213502

PATIENT
  Sex: Female
  Weight: 97.07 kg

DRUGS (4)
  1. SIMPONI [Suspect]
     Indication: PSORIASIS
     Route: 058
     Dates: start: 201212
  2. SIMPONI [Suspect]
     Indication: PSORIASIS
     Route: 058
     Dates: end: 201208
  3. SIMPONI [Suspect]
     Indication: PSORIATIC ARTHROPATHY
     Route: 058
     Dates: end: 201208
  4. SIMPONI [Suspect]
     Indication: PSORIATIC ARTHROPATHY
     Route: 058
     Dates: start: 201212

REACTIONS (2)
  - Menstrual disorder [Recovered/Resolved]
  - Drug ineffective [Unknown]
